FAERS Safety Report 11631129 (Version 1)
Quarter: 2015Q4

REPORT INFORMATION
  Report Type: Spontaneous
  Country: US (occurrence: US)
  Receive Date: 20151014
  Receipt Date: 20151014
  Transmission Date: 20160304
  Serious: Yes (Hospitalization)
  Sender: FDA-Public Use
  Company Number: US-TEVA-600142USA

PATIENT
  Age: 30 Year
  Sex: Male

DRUGS (1)
  1. COPAXONE [Suspect]
     Active Substance: GLATIRAMER ACETATE
     Indication: MULTIPLE SCLEROSIS
     Dates: start: 20141024

REACTIONS (4)
  - Chest discomfort [Unknown]
  - Paranasal sinus discomfort [Unknown]
  - Chills [Unknown]
  - Adverse reaction [Unknown]

NARRATIVE: CASE EVENT DATE: 20151006
